FAERS Safety Report 23131040 (Version 2)
Quarter: 2024Q4

REPORT INFORMATION
  Report Type: Spontaneous
  Country: US (occurrence: US)
  Receive Date: 20231031
  Receipt Date: 20241110
  Transmission Date: 20250114
  Serious: No
  Sender: SANOFI AVENTIS
  Company Number: US-SA-SAC20231027000311

PATIENT
  Age: 50 Year
  Sex: Female
  Weight: 65.76 kg

DRUGS (5)
  1. DUPIXENT [Suspect]
     Active Substance: DUPILUMAB
     Indication: Rhinitis allergic
     Dosage: 300 MG, QOW
     Route: 058
     Dates: start: 2021
  2. DUPIXENT [Suspect]
     Active Substance: DUPILUMAB
     Indication: Nasal polyps
  3. DUPIXENT [Suspect]
     Active Substance: DUPILUMAB
     Indication: Asthma
  4. OMEPRAZOLE [Concomitant]
     Active Substance: OMEPRAZOLE
     Dosage: UNK
  5. MONTELUKAST [Concomitant]
     Active Substance: MONTELUKAST
     Dosage: UNK

REACTIONS (3)
  - Weight decreased [Unknown]
  - Headache [Unknown]
  - Product use in unapproved indication [Unknown]

NARRATIVE: CASE EVENT DATE: 20210101
